FAERS Safety Report 6920833-7 (Version None)
Quarter: 2010Q3

REPORT INFORMATION
  Report Type: 
  Country: None (occurrence: None)
  Receive Date: 20100809
  Receipt Date: 20100809
  Transmission Date: 20110219
  Serious: No
  Sender: FDA-Public Use
  Company Number: None

PATIENT
  Age: 68 Year
  Sex: Female
  Weight: 68.0396 kg

DRUGS (2)
  1. MOVIPREP [Suspect]
  2. DULCOLAX -BISOCODY- TABLETS [Concomitant]

REACTIONS (3)
  - MEDICATION ERROR [None]
  - PRODUCT LABEL CONFUSION [None]
  - RETCHING [None]
